FAERS Safety Report 9685717 (Version 3)
Quarter: 2014Q2

REPORT INFORMATION
  Report Type: Spontaneous
  Country: AT (occurrence: AT)
  Receive Date: 20131113
  Receipt Date: 20140502
  Transmission Date: 20141212
  Serious: Yes (Other)
  Sender: FDA-Public Use
  Company Number: AT-ELI_LILLY_AND_COMPANY-AT201310004462

PATIENT
  Age: 54 Year
  Sex: Female
  Weight: 82 kg

DRUGS (9)
  1. CYMBALTA [Suspect]
     Indication: PRODUCT USED FOR UNKNOWN INDICATION
     Dosage: 60 MG, QD
     Route: 065
     Dates: start: 2010
  2. LAMICTAL [Suspect]
     Indication: PRODUCT USED FOR UNKNOWN INDICATION
     Dosage: 25 MG, QD
     Route: 065
     Dates: start: 20130603, end: 20130615
  3. LAMICTAL [Suspect]
     Dosage: 50 MG, QD
     Route: 065
     Dates: start: 20130616, end: 20130629
  4. LAMICTAL [Suspect]
     Dosage: 75 MG, QD
     Route: 065
     Dates: start: 20130630, end: 20130706
  5. LAMICTAL [Suspect]
     Dosage: 100 MG, QD
     Route: 065
     Dates: start: 20130707, end: 20130727
  6. LAMICTAL [Suspect]
     Dosage: 125 MG, QD
     Route: 065
     Dates: start: 20130728, end: 20130820
  7. LAMICTAL [Suspect]
     Dosage: 100 MG, QD
     Route: 065
     Dates: start: 20130821, end: 20130907
  8. LAMICTAL [Suspect]
     Dosage: 112.5 MG, QD
     Route: 065
     Dates: start: 20130909
  9. VALDOXAN [Suspect]
     Indication: PRODUCT USED FOR UNKNOWN INDICATION
     Dosage: 50 MG, QD
     Route: 065
     Dates: start: 20110207, end: 20130815

REACTIONS (8)
  - Disturbance in attention [Recovered/Resolved]
  - Memory impairment [Recovered/Resolved]
  - Tunnel vision [Recovered/Resolved]
  - Self injurious behaviour [Recovered/Resolved]
  - Foot fracture [Recovered/Resolved]
  - Vertigo [Recovered/Resolved]
  - Headache [Recovered/Resolved]
  - Vision blurred [Recovered/Resolved]
